FAERS Safety Report 7447577-X (Version None)
Quarter: 2011Q2

REPORT INFORMATION
  Report Type: 
  Country: None (occurrence: None)
  Receive Date: 20110429
  Receipt Date: 20110415
  Transmission Date: 20111010
  Serious: Yes (Other)
  Sender: FDA-Public Use
  Company Number: NL-WATSON-2011-05724

PATIENT
  Age: 71 Year
  Sex: Male

DRUGS (4)
  1. ESOMEPRAZOLE [Concomitant]
  2. PARACETAMOL [Concomitant]
  3. ERYTHROMYCIN [Suspect]
     Indication: PRODUCT USED FOR UNKNOWN INDICATION
     Dosage: 500 MG, QID
     Route: 048
  4. BORTEZOMIB [Suspect]
     Indication: MULTIPLE MYELOMA
     Dosage: 1.3 MG/M2, UNK

REACTIONS (1)
  - INHIBITORY DRUG INTERACTION [None]
